FAERS Safety Report 21298378 (Version 1)
Quarter: 2022Q3

REPORT INFORMATION
  Report Type: Spontaneous
  Country: NL (occurrence: NL)
  Receive Date: 20220906
  Receipt Date: 20220906
  Transmission Date: 20221027
  Serious: Yes (Other)
  Sender: FDA-Public Use
  Company Number: NL-NOVARTISPH-NVSC2022NL198827

PATIENT
  Age: 58 Year
  Sex: Female
  Weight: 73 kg

DRUGS (4)
  1. TEGRETOL [Suspect]
     Active Substance: CARBAMAZEPINE
     Indication: Glaucoma
     Dosage: UNK (5ML/MG, ONCE A DAY 1 DROP)
     Route: 065
     Dates: start: 1998
  2. EBASTINE [Suspect]
     Active Substance: EBASTINE
     Indication: Urticaria
     Dosage: 10 MG, QD (40 MILLIGRAM DAILY; 28 TABLETS A WEEK)
     Route: 065
     Dates: start: 20211220, end: 20220801
  3. LAMICTAL [Concomitant]
     Active Substance: LAMOTRIGINE
     Indication: Epilepsy
     Dosage: UNK (28 TABLETS PER WEEK, 25/50MG)
     Route: 048
     Dates: start: 19950515
  4. LAMICTAL [Concomitant]
     Active Substance: LAMOTRIGINE
     Dosage: 200 MG, QD (400 MILLIGRAM DAILY)
     Route: 048
     Dates: start: 19950515

REACTIONS (6)
  - Seizure [Recovered/Resolved]
  - Product packaging difficult to open [Unknown]
  - Impatience [Recovered/Resolved]
  - Discouragement [Recovered/Resolved]
  - Pain in extremity [Recovered/Resolved]
  - Menstrual disorder [Recovered/Resolved]

NARRATIVE: CASE EVENT DATE: 20211201
